FAERS Safety Report 13618402 (Version 1)
Quarter: 2017Q2

REPORT INFORMATION
  Report Type: Spontaneous
  Country: US (occurrence: US)
  Receive Date: 20170606
  Receipt Date: 20170606
  Transmission Date: 20170830
  Serious: No
  Sender: FDA-Public Use
  Company Number: US-BAYER-2017-102897

PATIENT
  Age: 55 Year
  Sex: Female
  Weight: 72.56 kg

DRUGS (1)
  1. ALEVE PM [Suspect]
     Active Substance: DIPHENHYDRAMINE HYDROCHLORIDE\NAPROXEN SODIUM
     Indication: SLEEP DISORDER THERAPY
     Dosage: 1 DF, UNK, 3 DOSES TOTAL
     Route: 048
     Dates: start: 201705, end: 20170525

REACTIONS (3)
  - Drug ineffective for unapproved indication [Unknown]
  - Insomnia [Unknown]
  - Somnolence [Recovered/Resolved]

NARRATIVE: CASE EVENT DATE: 201705
